FAERS Safety Report 9018392 (Version 2)
Quarter: 2013Q1

REPORT INFORMATION
  Report Type: Spontaneous
  Country: CA (occurrence: CA)
  Receive Date: 20130118
  Receipt Date: 20130130
  Transmission Date: 20140127
  Serious: Yes (Death)
  Sender: FDA-Public Use
  Company Number: CA-AMGEN-CANSP2013002027

PATIENT
  Age: 84 Year
  Sex: Female
  Weight: 42.63 kg

DRUGS (9)
  1. PROLIA [Suspect]
     Indication: PRODUCT USED FOR UNKNOWN INDICATION
     Dosage: UNK
     Dates: start: 20110824
  2. ADALAT XL [Concomitant]
     Indication: HYPERTENSION
     Dosage: 30 UNK, QD
     Route: 048
  3. SYNTHROID [Concomitant]
     Indication: HYPOTHYROIDISM
     Dosage: 0.88 UNK, QD
     Route: 048
  4. ASPIRIN [Concomitant]
     Indication: HYPERTENSION
     Dosage: 150 UNK, QD
     Route: 048
  5. NEXIUM                             /01479302/ [Concomitant]
     Indication: OESOPHAGEAL ULCER
     Dosage: 40 MG, QD
     Route: 048
  6. FERROUS SULFATE [Concomitant]
     Indication: ANAEMIA
     Dosage: 30 MG, QD
     Route: 048
  7. ARICEPT [Concomitant]
     Indication: DEMENTIA
     Dosage: 10 MG, QD
     Route: 048
  8. CITALOPRAM [Concomitant]
     Indication: DEPRESSION
     Dosage: 10 MG, QD
  9. CALCIUM + VITAMIN D                /01483701/ [Concomitant]
     Indication: OSTEOPOROSIS

REACTIONS (2)
  - Death [Fatal]
  - Asthenia [Unknown]
